FAERS Safety Report 9387612 (Version 1)
Quarter: 2013Q2

REPORT INFORMATION
  Report Type: Spontaneous
  Country: FR (occurrence: None)
  Receive Date: 20130624
  Receipt Date: 20130624
  Transmission Date: 20140414
  Serious: Yes (Hospitalization)
  Sender: FDA-Public Use
  Company Number: 2013035371

PATIENT
  Age: 80 Year
  Sex: Female

DRUGS (1)
  1. PROTHROMBIN [Suspect]
     Indication: ANTICOAGULANT THERAPY
     Dosage: 2000 IU TOTAL INTRAVENOUS (NOT OTHERWISE SPECIFIED)
     Route: 042
     Dates: start: 20130218, end: 20130218

REACTIONS (1)
  - Pulmonary embolism [None]
